FAERS Safety Report 25999939 (Version 1)
Quarter: 2025Q4

REPORT INFORMATION
  Report Type: Spontaneous
  Country: US (occurrence: None)
  Receive Date: 20251104
  Receipt Date: 20251104
  Transmission Date: 20260118
  Serious: Yes (Other)
  Sender: FDA-CTU
  Company Number: None

PATIENT
  Age: 83 Year
  Sex: Male

DRUGS (1)
  1. PIRFENIDONE [Suspect]
     Active Substance: PIRFENIDONE
     Dosage: 267MG  3 TIMES DAILY

REACTIONS (5)
  - Decreased appetite [None]
  - Weight decreased [None]
  - Pain [None]
  - Headache [None]
  - Genital erythema [None]
